FAERS Safety Report 18591754 (Version 1)
Quarter: 2020Q4

REPORT INFORMATION
  Report Type: Spontaneous
  Country: CH (occurrence: CH)
  Receive Date: 20201208
  Receipt Date: 20201208
  Transmission Date: 20210114
  Serious: Yes (Other)
  Sender: FDA-Public Use
  Company Number: CH-ASTRAZENECA-2020SF62766

PATIENT
  Age: 74 Year
  Sex: Male

DRUGS (22)
  1. DISTRANEURIN [CLOMETHIAZOLE EDISILATE] [Concomitant]
     Dosage: UNK
     Route: 065
     Dates: start: 20201011
  2. NEXIUM [Suspect]
     Active Substance: ESOMEPRAZOLE MAGNESIUM
     Indication: PRODUCT USED FOR UNKNOWN INDICATION
     Dosage: 20 MILLIGRAM, 1/DAY
     Route: 048
     Dates: start: 20201104, end: 20201116
  3. PIPERACILLIN AND TAZOBACTAM [Concomitant]
     Active Substance: PIPERACILLIN SODIUM\TAZOBACTAM SODIUM
     Dosage: UNK
     Dates: start: 20201030, end: 20201105
  4. SOLU-MEDROL [Concomitant]
     Active Substance: METHYLPREDNISOLONE SODIUM SUCCINATE
     Dosage: UNK
     Route: 065
     Dates: start: 20201104, end: 20201108
  5. INSULINE GLARGINE [Concomitant]
     Active Substance: INSULIN GLARGINE
     Dosage: UNK
     Route: 065
  6. AMLODIPINE [Concomitant]
     Active Substance: AMLODIPINE BESYLATE
     Dosage: UNK
     Route: 065
  7. CLEXANE [Suspect]
     Active Substance: ENOXAPARIN SODIUM
     Indication: HAEMORRHAGE PROPHYLAXIS
     Dosage: 60 MILLIGRAM, ONCE60.0MG ONCE/SINGLE ADMINISTRATION
     Route: 058
     Dates: start: 20201027, end: 20201027
  8. OXALIPLATIN. [Concomitant]
     Active Substance: OXALIPLATIN
     Indication: ADENOCARCINOMA OF COLON
     Dosage: UNK
     Route: 065
     Dates: start: 202008, end: 20201027
  9. XELODA [Concomitant]
     Active Substance: CAPECITABINE
     Indication: ADENOCARCINOMA OF COLON
     Dosage: UNK
     Route: 065
     Dates: start: 202008, end: 20201027
  10. BACTRIM [Suspect]
     Active Substance: SULFAMETHOXAZOLE\TRIMETHOPRIM
     Dosage: 160 MILLIGRAM, 3/WEEK
     Route: 065
     Dates: start: 20201104, end: 20201116
  11. PREDNISONE. [Concomitant]
     Active Substance: PREDNISONE
     Dosage: UNK
     Route: 065
     Dates: start: 20201109
  12. CIRCADIN [Concomitant]
     Active Substance: MELATONIN
     Dosage: UNK
     Route: 065
     Dates: start: 20201012
  13. DEXAMETHASONE. [Concomitant]
     Active Substance: DEXAMETHASONE
     Dosage: UNK
     Route: 065
     Dates: start: 20201030, end: 20201104
  14. HALDOL [Concomitant]
     Active Substance: HALOPERIDOL
     Dosage: UNK
     Route: 065
     Dates: start: 20201107
  15. CLEXANE [Suspect]
     Active Substance: ENOXAPARIN SODIUM
     Indication: HAEMORRHAGE PROPHYLAXIS
     Dosage: 40 MILLIGRAM, 1/DAY40.0MG ONCE/SINGLE ADMINISTRATION
     Route: 058
     Dates: start: 20201102, end: 20201113
  16. EUTHYROX [Concomitant]
     Active Substance: LEVOTHYROXINE SODIUM
     Dosage: UNK
     Route: 065
     Dates: start: 20201030
  17. QUETIAPINE. [Concomitant]
     Active Substance: QUETIAPINE
     Dosage: UNK UNK, AS NEEDED INTERMITTENT
     Route: 065
     Dates: start: 20201109
  18. LOSARTAN. [Concomitant]
     Active Substance: LOSARTAN
     Dosage: UNK
     Route: 065
  19. LASIX [Suspect]
     Active Substance: FUROSEMIDE
     Dosage: 20 MILLIGRAM, 1/DAY
     Route: 065
     Dates: start: 20201105, end: 20201112
  20. CLEXANE [Suspect]
     Active Substance: ENOXAPARIN SODIUM
     Indication: HAEMORRHAGE PROPHYLAXIS
     Dosage: 40 MILLIGRAM, ONCE40.0MG ONCE/SINGLE ADMINISTRATION
     Route: 058
     Dates: start: 20201028, end: 20201028
  21. NOVORAPID [Concomitant]
     Active Substance: INSULIN ASPART
     Dosage: UNK
     Route: 065
  22. DAFALGAN [Concomitant]
     Active Substance: ACETAMINOPHEN
     Dosage: UNK, AS NEEDED INTERMITTENT
     Route: 065
     Dates: start: 20201027, end: 20201031

REACTIONS (2)
  - General physical health deterioration [Not Recovered/Not Resolved]
  - Thrombocytopenia [Not Recovered/Not Resolved]

NARRATIVE: CASE EVENT DATE: 20201112
